FAERS Safety Report 5052456-1 (Version None)
Quarter: 2006Q3

REPORT INFORMATION
  Report Type: 
  Country: None (occurrence: None)
  Receive Date: 20060717
  Receipt Date: 20060412
  Transmission Date: 20061208
  Serious: No
  Sender: FDA-Public Use
  Company Number: US-BRISTOL-MYERS SQUIBB COMPANY-13344924

PATIENT
  Age: 50 Year
  Sex: Female
  Weight: 54 kg

DRUGS (3)
  1. ESTRACE [Suspect]
     Indication: HOT FLUSH
  2. FLAXSEED [Concomitant]
  3. MULTI-VITAMIN [Concomitant]

REACTIONS (1)
  - HOT FLUSH [None]
